FAERS Safety Report 4688833-8 (Version None)
Quarter: 2005Q2

REPORT INFORMATION
  Report Type: 
  Country: None (occurrence: None)
  Receive Date: 20050613
  Receipt Date: 20050428
  Transmission Date: 20051028
  Serious: Yes (Other)
  Sender: FDA-Public Use
  Company Number: AU-GLAXOSMITHKLINE-B0380012A

PATIENT
  Age: 72 Year
  Sex: Female

DRUGS (5)
  1. ZYBAN [Suspect]
     Route: 048
     Dates: start: 20050408, end: 20050417
  2. THYROXINE [Concomitant]
  3. DIPHENHYDRAMINE HCL [Concomitant]
     Dosage: 10MG PER DAY
  4. PREDNISOLONE [Concomitant]
     Dosage: 5MG PER DAY
  5. FUROSEMIDE [Concomitant]
     Dosage: 20MG PER DAY

REACTIONS (8)
  - ANGIONEUROTIC OEDEMA [None]
  - DRY MOUTH [None]
  - HYPERHIDROSIS [None]
  - ILL-DEFINED DISORDER [None]
  - MOUTH ULCERATION [None]
  - ORAL PAIN [None]
  - SWELLING FACE [None]
  - TREMOR [None]
